FAERS Safety Report 4965807-0 (Version None)
Quarter: 2006Q2

REPORT INFORMATION
  Report Type: 
  Country: None (occurrence: None)
  Receive Date: 20060406
  Receipt Date: 20060406
  Transmission Date: 20061013
  Serious: Yes (Life-Threatening, Hospitalization)
  Sender: FDA-Public Use
  Company Number: None

PATIENT
  Age: 43 Year
  Sex: Female
  Weight: 75 kg

DRUGS (8)
  1. BUSULFAN [Suspect]
     Indication: ACUTE MYELOID LEUKAEMIA
     Dosage: 60 MG/PO /Q6
     Route: 048
     Dates: start: 20060221, end: 20060224
  2. CYTOXAN [Suspect]
     Dosage: 3800 MG/IV/QD
     Route: 042
     Dates: start: 20060225, end: 20060227
  3. ACYCLOVIR [Concomitant]
  4. MAGNESIUM SULFATE [Concomitant]
  5. URSODIOL [Concomitant]
  6. ATIVAN [Concomitant]
  7. REMORAN [Concomitant]
  8. PREVACID [Concomitant]

REACTIONS (7)
  - BACK PAIN [None]
  - CARDIO-RESPIRATORY ARREST [None]
  - CHEST PAIN [None]
  - DYSPNOEA [None]
  - ELECTROMECHANICAL DISSOCIATION [None]
  - HYPOXIA [None]
  - INTERSTITIAL LUNG DISEASE [None]
